FAERS Safety Report 7244090 (Version 2)
Quarter: 2013Q3

REPORT INFORMATION
  Report Type: Spontaneous
  Country: None (occurrence: None)
  Receive Date: 20091224
  Receipt Date: 20130708
  Transmission Date: 20140515
  Serious: Yes (Other)
  Sender: FDA-Public Use
  Company Number: AUR-APL-2009-00151

PATIENT
  Age: 63 Year
  Sex: Male

DRUGS (2)
  1. RIBAVIRIN (RIBAVIRIN) [Suspect]
     Indication: HEPATITIS C
  2. PEGYLATED INTERFERON [Suspect]
     Indication: HEPATITIS C
     Dosage: 100 UG/WEEK FOR 1ST WEEK

REACTIONS (10)
  - Ocular myasthenia [None]
  - Platelet count decreased [None]
  - Epistaxis [None]
  - Pyrexia [None]
  - Asthenia [None]
  - Rash pruritic [None]
  - Pyrexia [None]
  - Dizziness [None]
  - Diplopia [None]
  - Eyelid ptosis [None]
